FAERS Safety Report 20310120 (Version 7)
Quarter: 2022Q1

REPORT INFORMATION
  Report Type: Report from Study
  Country: CN (occurrence: CN)
  Receive Date: 20220107
  Receipt Date: 20220311
  Transmission Date: 20220423
  Serious: Yes (Hospitalization, Other)
  Sender: FDA-Public Use
  Company Number: CN-GLAXOSMITHKLINE-CN2021GSK265955

PATIENT
  Age: 57 Year
  Sex: Female
  Weight: 52 kg

DRUGS (7)
  1. NIRAPARIB [Suspect]
     Active Substance: NIRAPARIB
     Indication: Neoplasm
     Dosage: 200 MG, QD
     Route: 048
     Dates: start: 20211214, end: 20211226
  2. NIRAPARIB [Suspect]
     Active Substance: NIRAPARIB
     Indication: Gastric cancer
  3. TEBOTELIMAB [Suspect]
     Active Substance: TEBOTELIMAB
     Indication: Neoplasm
     Dosage: 600 MG
     Route: 041
     Dates: start: 20211214, end: 20211214
  4. TEBOTELIMAB [Suspect]
     Active Substance: TEBOTELIMAB
     Indication: Gastric cancer
     Dosage: 600 MG
     Route: 041
     Dates: start: 20211227, end: 20211227
  5. TRAMADOL HYDROCHLORIDE [Concomitant]
     Active Substance: TRAMADOL HYDROCHLORIDE
     Indication: Pain
     Dosage: 0.1 G/TIME ONCE EVERY THREE DAYS
     Route: 048
     Dates: start: 202109
  6. ESTAZOLAM [Concomitant]
     Active Substance: ESTAZOLAM
     Indication: Insomnia
     Dosage: 2 MG, WE
     Dates: start: 202109
  7. LACTULOSE [Concomitant]
     Active Substance: LACTULOSE
     Indication: Constipation
     Dosage: 15 ML, TID
     Route: 048
     Dates: start: 20211225, end: 20211225

REACTIONS (5)
  - Myelosuppression [Recovered/Resolved]
  - Pneumonia [Not Recovered/Not Resolved]
  - Liver abscess [Not Recovered/Not Resolved]
  - Biliary tract infection [Not Recovered/Not Resolved]
  - Pyrexia [Recovering/Resolving]

NARRATIVE: CASE EVENT DATE: 20211227
